FAERS Safety Report 6882696-8 (Version None)
Quarter: 2010Q3

REPORT INFORMATION
  Report Type: 
  Country: None (occurrence: None)
  Receive Date: 20100702
  Receipt Date: 20090625
  Transmission Date: 20110219
  Serious: No
  Sender: FDA-Public Use
  Company Number: 2009-00244

PATIENT
  Age: 38 Year
  Sex: Male
  Weight: 79.3795 kg

DRUGS (1)
  1. ZICAM EXTREME CONGESTION RELIEF [Suspect]
     Dosage: 2-3 XS WEEKLY, 1 MONTH
     Dates: start: 20090525, end: 20090618

REACTIONS (2)
  - AGEUSIA [None]
  - ANOSMIA [None]
